FAERS Safety Report 6016523-8 (Version None)
Quarter: 2008Q4

REPORT INFORMATION
  Report Type: 
  Country: None (occurrence: None)
  Receive Date: 20081222
  Receipt Date: 20081219
  Transmission Date: 20090506
  Serious: Yes (Death, Life-Threatening, Disabling, Other)
  Sender: FDA-Public Use
  Company Number: JP-ASTRAZENECA-2004AP00578

PATIENT
  Age: 64 Year
  Sex: Male

DRUGS (1)
  1. XYLOCAINE [Suspect]
     Indication: VENTRICULAR ARRHYTHMIA
     Route: 041
     Dates: start: 20040101, end: 20040101

REACTIONS (4)
  - ACCIDENTAL OVERDOSE [None]
  - ALTERED STATE OF CONSCIOUSNESS [None]
  - CARDIO-RESPIRATORY ARREST [None]
  - MEDICATION ERROR [None]
